FAERS Safety Report 8512089-9 (Version None)
Quarter: 2012Q3

REPORT INFORMATION
  Report Type: 
  Country: None (occurrence: None)
  Receive Date: 20120716
  Receipt Date: 20120712
  Transmission Date: 20120928
  Serious: Yes (Other)
  Sender: FDA-Public Use
  Company Number: PHHY2011NL47955

PATIENT
  Sex: Male

DRUGS (6)
  1. ZOMETA [Suspect]
     Dosage: 4 MG/ 100 ML, 1X PER 28 DAYS
     Route: 042
     Dates: start: 20120625
  2. ZOMETA [Suspect]
     Dosage: 4 MG/ 100 ML, 1X PER 28 DAYS
     Route: 042
     Dates: start: 20120523
  3. ZOMETA [Suspect]
     Indication: PROSTATE CANCER METASTATIC
     Dosage: 4 MG, PER 28 DAYS
     Route: 042
     Dates: start: 20100621
  4. ZOMETA [Suspect]
     Dosage: 4 MG, PER 28 DAYS
     Route: 042
     Dates: start: 20110531
  5. LEUPROLIDE ACETATE [Concomitant]
     Dosage: 1 DF, PER 3 MONTHS
  6. ZOMETA [Suspect]
     Dosage: 4 MG, PER 28 DAYS
     Route: 042
     Dates: start: 20110505

REACTIONS (4)
  - PROSTATIC SPECIFIC ANTIGEN INCREASED [None]
  - NEOPLASM PROGRESSION [None]
  - NEOPLASM MALIGNANT [None]
  - GENERAL PHYSICAL HEALTH DETERIORATION [None]
